FAERS Safety Report 8218211-6 (Version None)
Quarter: 2012Q1

REPORT INFORMATION
  Report Type: 
  Country: None (occurrence: None)
  Receive Date: 20120319
  Receipt Date: 20120313
  Transmission Date: 20120608
  Serious: Yes (Hospitalization)
  Sender: FDA-Public Use
  Company Number: US-GILEAD-2012-0051356

PATIENT
  Sex: Male

DRUGS (11)
  1. LISINOPRIL [Concomitant]
     Indication: HYPERTENSION
     Dosage: UNK
     Dates: start: 20100101
  2. WARFARIN SODIUM [Concomitant]
     Indication: PULMONARY ARTERIAL HYPERTENSION
     Dosage: UNK
     Dates: start: 20080101
  3. LETAIRIS [Suspect]
     Indication: SARCOIDOSIS
  4. ROSUVASTATIN [Concomitant]
     Indication: HYPERCHOLESTEROLAEMIA
     Dosage: UNK
     Dates: start: 20100101
  5. SODIUM CHLORIDE [Concomitant]
     Indication: RHINITIS
     Dosage: UNK
     Dates: start: 20100101
  6. ZOLPIDEM [Concomitant]
     Indication: INSOMNIA
     Dosage: UNK
     Dates: start: 20100101
  7. LETAIRIS [Suspect]
     Indication: PULMONARY HYPERTENSION
     Dosage: 5 MG, UNK
     Route: 048
     Dates: start: 20110811
  8. CETIRIZINE [Concomitant]
     Indication: RHINITIS
     Dosage: UNK
     Dates: start: 20100101
  9. FLUTICASONE FUROATE [Concomitant]
     Indication: RHINITIS
     Dosage: UNK
     Dates: start: 20100101
  10. SILDENAFIL [Concomitant]
     Indication: PULMONARY ARTERIAL HYPERTENSION
     Dosage: UNK
     Dates: start: 20080101
  11. LETAIRIS [Suspect]
     Indication: INTERSTITIAL LUNG DISEASE

REACTIONS (3)
  - DYSPNOEA [None]
  - PNEUMONIA [None]
  - ATRIAL FIBRILLATION [None]
